FAERS Safety Report 21813804 (Version 2)
Quarter: 2023Q1

REPORT INFORMATION
  Report Type: Spontaneous
  Country: US (occurrence: US)
  Receive Date: 20230104
  Receipt Date: 20230210
  Transmission Date: 20230417
  Serious: Yes (Disabling, Other)
  Sender: FDA-Public Use
  Company Number: US-MSNLABS-2022MSNSPO01605

PATIENT

DRUGS (1)
  1. PACLITAXEL [Suspect]
     Active Substance: PACLITAXEL
     Indication: Breast cancer
     Dosage: 300 MG PER WEEK
     Route: 042
     Dates: start: 202207, end: 20220920

REACTIONS (11)
  - Rib fracture [Not Recovered/Not Resolved]
  - Impaired work ability [Not Recovered/Not Resolved]
  - Musculoskeletal stiffness [Not Recovered/Not Resolved]
  - Chest discomfort [Not Recovered/Not Resolved]
  - Abdominal rigidity [Not Recovered/Not Resolved]
  - Coordination abnormal [Not Recovered/Not Resolved]
  - Fall [Unknown]
  - Gait disturbance [Not Recovered/Not Resolved]
  - Decubitus ulcer [Not Recovered/Not Resolved]
  - Paralysis [Not Recovered/Not Resolved]
  - Hypoaesthesia [Not Recovered/Not Resolved]
